FAERS Safety Report 4311363-X (Version None)
Quarter: 2004Q1

REPORT INFORMATION
  Report Type: 
  Country: None (occurrence: None)
  Receive Date: 20040302
  Receipt Date: 20030603
  Transmission Date: 20041129
  Serious: Yes (Hospitalization)
  Sender: FDA-Public Use
  Company Number: BDI-005188

PATIENT
  Age: 30 Year
  Sex: Female

DRUGS (2)
  1. ISOVUE-300 [Suspect]
     Indication: COMPUTERISED TOMOGRAM
     Dosage: 100 ML ONCE IV
     Route: 042
     Dates: start: 20030522, end: 20030522
  2. ISOVUE-300 [Suspect]
     Indication: PAIN
     Dosage: 100 ML ONCE IV
     Route: 042
     Dates: start: 20030522, end: 20030522

REACTIONS (11)
  - BRONCHOSPASM [None]
  - DIZZINESS [None]
  - DYSPNOEA [None]
  - ERYTHEMA [None]
  - LARYNGEAL OEDEMA [None]
  - OXYGEN SATURATION DECREASED [None]
  - SNEEZING [None]
  - SWOLLEN TONGUE [None]
  - TACHYCARDIA [None]
  - VOMITING [None]
  - WHEEZING [None]
